FAERS Safety Report 9420793 (Version 1)
Quarter: 2013Q3

REPORT INFORMATION
  Report Type: Spontaneous
  Country: US (occurrence: US)
  Receive Date: 20130725
  Receipt Date: 20130725
  Transmission Date: 20140515
  Serious: No
  Sender: FDA-Public Use
  Company Number: US-ABBOTT-13P-163-1075622-00

PATIENT
  Age: 48 Year
  Sex: Female
  Weight: 91.25 kg

DRUGS (5)
  1. SYNTHROID [Suspect]
     Indication: HYPOTHYROIDISM
     Route: 048
     Dates: start: 2006, end: 20130404
  2. LISINOPRIL [Concomitant]
     Indication: HYPERTENSION
  3. PROZAC [Concomitant]
     Indication: DEPRESSION
  4. ZOCOR [Concomitant]
     Indication: BLOOD CHOLESTEROL INCREASED
  5. OMEPRAZOLE [Concomitant]
     Indication: GASTRIC DISORDER

REACTIONS (1)
  - Fatigue [Not Recovered/Not Resolved]
